FAERS Safety Report 7808893-2 (Version None)
Quarter: 2011Q4

REPORT INFORMATION
  Report Type: 
  Country: None (occurrence: None)
  Receive Date: 20111012
  Receipt Date: 20111010
  Transmission Date: 20120403
  Serious: Yes (Death)
  Sender: FDA-Public Use
  Company Number: PHEH2011US06177

PATIENT
  Sex: Male

DRUGS (5)
  1. LANTUS [Concomitant]
  2. REMERON [Concomitant]
     Dosage: 30 MG, UNK
  3. GLIPIZIDE [Concomitant]
     Dosage: 10 MG, UNK
  4. METFORMIN HYDROCHLORIDE [Concomitant]
     Dosage: 1000 MG, UNK
  5. EXJADE [Suspect]
     Dosage: 1000 MG, BID

REACTIONS (2)
  - FULL BLOOD COUNT DECREASED [None]
  - GASTROINTESTINAL HAEMORRHAGE [None]
